FAERS Safety Report 6759339-7 (Version None)
Quarter: 2010Q2

REPORT INFORMATION
  Report Type: 
  Country: None (occurrence: None)
  Receive Date: 20100607
  Receipt Date: 20100527
  Transmission Date: 20101027
  Serious: No
  Sender: FDA-Public Use
  Company Number: JP-PFIZER INC-2010062202

PATIENT
  Age: 41 Year
  Sex: Male

DRUGS (1)
  1. ATARAX [Suspect]
     Dosage: UNK
     Route: 042

REACTIONS (1)
  - INJECTION SITE PAIN [None]
